FAERS Safety Report 5569567-4 (Version None)
Quarter: 2007Q4

REPORT INFORMATION
  Report Type: 
  Country: None (occurrence: None)
  Receive Date: 20071220
  Receipt Date: 20071212
  Transmission Date: 20080405
  Serious: Yes (Hospitalization)
  Sender: FDA-Public Use
  Company Number: US-ELI_LILLY_AND_COMPANY-US200712002814

PATIENT
  Age: 55 Year
  Sex: Female

DRUGS (2)
  1. CYMBALTA [Suspect]
  2. METHADONE HCL [Concomitant]

REACTIONS (3)
  - BLOOD POTASSIUM DECREASED [None]
  - NAUSEA [None]
  - VOMITING [None]
